FAERS Safety Report 13139219 (Version 1)
Quarter: 2017Q1

REPORT INFORMATION
  Report Type: Spontaneous
  Country: MX (occurrence: MX)
  Receive Date: 20170123
  Receipt Date: 20170123
  Transmission Date: 20170428
  Serious: Yes (Other)
  Sender: FDA-Public Use
  Company Number: MX-PFIZER INC-2017023932

PATIENT
  Age: 62 Year
  Sex: Male

DRUGS (4)
  1. LIPITOR [Suspect]
     Active Substance: ATORVASTATIN CALCIUM
     Dosage: HALF TABLET OF 80 MG, UNKNOWN FREQUENCY
  2. ANTALGIN /00003801/ [Concomitant]
     Dosage: UNK
  3. NORVASC [Suspect]
     Active Substance: AMLODIPINE BESYLATE
     Dosage: UNKNOWN DOSE AND FREQUENCY
  4. TAFIL [Suspect]
     Active Substance: ALPRAZOLAM
     Dosage: UNKNOWN DOSE AND FREQUENCY

REACTIONS (1)
  - Blindness [Not Recovered/Not Resolved]
